FAERS Safety Report 8880299 (Version 1)
Quarter: 2012Q4

REPORT INFORMATION
  Report Type: 
  Country: CA (occurrence: CA)
  Receive Date: 20121101
  Receipt Date: 20121101
  Transmission Date: 20130627
  Serious: Yes (Death)
  Sender: FDA-Public Use
  Company Number: PHHY2012CA098540

PATIENT
  Age: 63 Year
  Sex: Male

DRUGS (1)
  1. SANDOSTATIN LAR [Suspect]
     Indication: HAEMOCHROMATOSIS
     Dosage: 20 mg, QMO
     Route: 030
     Dates: start: 20120807, end: 20120929

REACTIONS (1)
  - Death [Fatal]
